FAERS Safety Report 7960113-4 (Version None)
Quarter: 2011Q4

REPORT INFORMATION
  Report Type: 
  Country: None (occurrence: None)
  Receive Date: 20111206
  Receipt Date: 20111201
  Transmission Date: 20120403
  Serious: Yes (Hospitalization, Other)
  Sender: FDA-Public Use
  Company Number: DE-ABBOTT-11P-062-0876790-00

PATIENT
  Age: 68 Year
  Sex: Male

DRUGS (1)
  1. HUMIRA [Suspect]
     Indication: PSORIASIS
     Route: 058
     Dates: start: 20100309, end: 20111014

REACTIONS (8)
  - DYSARTHRIA [None]
  - INTENTION TREMOR [None]
  - ATAXIA [None]
  - DISORIENTATION [None]
  - TREMOR [None]
  - APHASIA [None]
  - ENCEPHALITIS [None]
  - HYPERREFLEXIA [None]
